FAERS Safety Report 7297510-9 (Version None)
Quarter: 2011Q1

REPORT INFORMATION
  Report Type: 
  Country: None (occurrence: None)
  Receive Date: 20110216
  Receipt Date: 20110211
  Transmission Date: 20110831
  Serious: Yes (Other)
  Sender: FDA-Public Use
  Company Number: JP-PFIZER INC-2011022963

PATIENT
  Age: 80 Year
  Sex: Male

DRUGS (3)
  1. ESTRAMUSTINE SODIUM PHOSPHATE [Suspect]
     Indication: PROSTATE CANCER
     Dosage: UNK
  2. DEXAMETHASONE [Suspect]
     Indication: PROSTATE CANCER
     Dosage: UNK
  3. DOCETAXEL [Suspect]
     Indication: PROSTATE CANCER
     Dosage: UNK

REACTIONS (3)
  - NICOTINIC ACID DEFICIENCY [None]
  - DECREASED APPETITE [None]
  - WEIGHT DECREASED [None]
